FAERS Safety Report 4897334-3 (Version None)
Quarter: 2005Q4

REPORT INFORMATION
  Report Type: 
  Country: None (occurrence: None)
  Receive Date: 20051223
  Receipt Date: 20051013
  Transmission Date: 20060501
  Serious: No
  Sender: FDA-Public Use
  Company Number: 05P-163-0313622-00

PATIENT
  Age: 35 Year
  Sex: Female
  Weight: 58.9676 kg

DRUGS (5)
  1. HUMIRA [Suspect]
     Indication: RHEUMATOID ARTHRITIS
     Dosage: 40 MG, 1 I 2 WK, SUBCUTANEOUS
     Route: 058
     Dates: start: 20040101
  2. CLONAZEPAM [Concomitant]
  3. PROVELLA-14 [Concomitant]
  4. HYDROCHLOROTHIAZIDE [Concomitant]
  5. ESOMEPRAZOLE [Concomitant]

REACTIONS (1)
  - ABDOMINAL PAIN [None]
